FAERS Safety Report 8549871-8 (Version None)
Quarter: 2012Q3

REPORT INFORMATION
  Report Type: 
  Country: None (occurrence: None)
  Receive Date: 20120730
  Receipt Date: 20111019
  Transmission Date: 20120928
  Serious: No
  Sender: FDA-Public Use
  Company Number: US-GLAXOSMITHKLINE-A0949713A

PATIENT
  Sex: Male

DRUGS (9)
  1. SUMATRIPTAN SUCCINATE [Suspect]
     Indication: MIGRAINE
     Dosage: 100MG AS REQUIRED
     Route: 048
     Dates: start: 20100101, end: 20100701
  2. COQ10 [Concomitant]
  3. VITAMIN B6 [Concomitant]
  4. LYRICA [Concomitant]
  5. MAGNESIUM SULFATE [Concomitant]
  6. IMITREX [Suspect]
     Dosage: 6MG AS REQUIRED
     Route: 058
     Dates: start: 20110101
  7. VITAMIN B-12 [Concomitant]
  8. BOTOX [Concomitant]
  9. IMITREX [Suspect]
     Indication: MIGRAINE
     Dosage: 100MG AS REQUIRED
     Route: 048
     Dates: start: 20100101, end: 20100701

REACTIONS (1)
  - DRUG INEFFECTIVE [None]
